FAERS Safety Report 25627320 (Version 4)
Quarter: 2025Q4

REPORT INFORMATION
  Report Type: Spontaneous
  Country: US (occurrence: US)
  Receive Date: 20250731
  Receipt Date: 20251208
  Transmission Date: 20260118
  Serious: Yes (Hospitalization, Other)
  Sender: PFIZER
  Company Number: US-PFIZER INC-202500150132

PATIENT
  Age: 3 Year
  Sex: Female

DRUGS (2)
  1. GENOTROPIN [Suspect]
     Active Substance: SOMATROPIN
     Indication: Small for dates baby
     Dosage: 0.4 MG/DAY, 7 DAYS/WEEK
  2. GENOTROPIN [Suspect]
     Active Substance: SOMATROPIN
     Indication: Short stature

REACTIONS (3)
  - Impaired gastric emptying [Unknown]
  - Poor feeding infant [Unknown]
  - Product physical issue [Unknown]

NARRATIVE: CASE EVENT DATE: 20251015
